FAERS Safety Report 23666888 (Version 1)
Quarter: 2024Q1

REPORT INFORMATION
  Report Type: Report from Study
  Country: US (occurrence: None)
  Receive Date: 20240325
  Receipt Date: 20240325
  Transmission Date: 20240410
  Serious: Yes (Other)
  Sender: FDA-Public Use
  Company Number: 2024A070027

PATIENT
  Sex: Female

DRUGS (1)
  1. LYNPARZA [Suspect]
     Active Substance: OLAPARIB
     Route: 048
     Dates: start: 2019

REACTIONS (7)
  - Thrombosis [Unknown]
  - Product prescribing error [Unknown]
  - Loss of consciousness [Unknown]
  - Full blood count decreased [Unknown]
  - Drug intolerance [Unknown]
  - Illness [Unknown]
  - Off label use [Unknown]
